FAERS Safety Report 5774076-3 (Version None)
Quarter: 2008Q2

REPORT INFORMATION
  Report Type: 
  Country: None (occurrence: None)
  Receive Date: 20080616
  Receipt Date: 20080604
  Transmission Date: 20081010
  Serious: Yes (Death, Other)
  Sender: FDA-Public Use
  Company Number: US-MERCK-0806USA00952

PATIENT
  Age: 68 Year
  Sex: Female

DRUGS (5)
  1. CANCIDAS [Suspect]
     Indication: SYSTEMIC CANDIDA
     Route: 065
  2. CANCIDAS [Suspect]
     Route: 065
  3. CANCIDAS [Suspect]
     Indication: FUNGAL INFECTION
     Route: 065
  4. CANCIDAS [Suspect]
     Indication: PELVIC ABSCESS
     Route: 065
  5. CANCIDAS [Suspect]
     Indication: INFECTION
     Route: 065

REACTIONS (8)
  - CANDIDA SEROLOGY POSITIVE [None]
  - CARDIO-RESPIRATORY ARREST [None]
  - DRUG RESISTANCE [None]
  - HYPOTENSION [None]
  - PELVIC ABSCESS [None]
  - PYREXIA [None]
  - RENAL FAILURE ACUTE [None]
  - SEPSIS [None]
